FAERS Safety Report 21715971 (Version 5)
Quarter: 2023Q1

REPORT INFORMATION
  Report Type: Report from Study
  Country: PT (occurrence: PT)
  Receive Date: 20221212
  Receipt Date: 20230201
  Transmission Date: 20230418
  Serious: Yes (Other)
  Sender: FDA-Public Use
  Company Number: PT-ABBVIE-4155015

PATIENT
  Age: 67 Year
  Sex: Male

DRUGS (20)
  1. CARBIDOPA\LEVODOPA [Suspect]
     Active Substance: CARBIDOPA\LEVODOPA
     Indication: Parkinson^s disease
     Dosage: 20 MG + 5 MG?MORN:15CC;MAINT:5.2CC/H;EXTRA:2CC?FIRST ADMIN DATE: 2022?LAST ADMIN DATE: 2022
     Route: 050
  2. CARBIDOPA\LEVODOPA [Suspect]
     Active Substance: CARBIDOPA\LEVODOPA
     Dosage: 20 MG + 5 MG?MORN:10CC;MAINT:1.5CC/H;EXTRA:1CC?LAST ADMIN DATE: 2022
     Route: 050
     Dates: start: 20211014
  3. CARBIDOPA\LEVODOPA [Suspect]
     Active Substance: CARBIDOPA\LEVODOPA
     Dosage: 20 MG + 5 MG?MORN:15CC;MAINT:5.2CC/H;EXTRA:2.5CC
     Route: 050
     Dates: start: 20221115, end: 20221207
  4. CARBIDOPA\LEVODOPA [Suspect]
     Active Substance: CARBIDOPA\LEVODOPA
     Dosage: 20 MG + 5 MG ?MORN:15CC;MAINT:5CC/H;EXTRA:2CC?FIRST ADMIN DATE: 2022
     Route: 050
     Dates: end: 20221115
  5. CARBIDOPA\LEVODOPA [Suspect]
     Active Substance: CARBIDOPA\LEVODOPA
     Dosage: 20 MG + 5 MG
     Route: 050
     Dates: start: 20221207, end: 20230116
  6. Folic acid dc 5mg [Concomitant]
     Indication: Product used for unknown indication
     Dosage: 1 TABLET AT LUNCH
     Dates: start: 202110
  7. IDON [Concomitant]
     Indication: Product used for unknown indication
     Dosage: TIME INTERVAL: 0.33333333 DAYS: 3 TABLET
     Route: 048
     Dates: start: 202110, end: 2022
  8. cyanocobalamin 1 mg [Concomitant]
     Indication: Product used for unknown indication
     Dosage: 1 MILLIGRAM AT LUNCH
     Dates: start: 202110
  9. NEXIUM [Concomitant]
     Active Substance: ESOMEPRAZOLE MAGNESIUM
     Indication: Product used for unknown indication
     Dosage: 1 TABLET?AT FASTING, FORM STRENGTH 40 MG
     Route: 048
     Dates: start: 202110
  10. Betolvex 1 mg [Concomitant]
     Indication: Product used for unknown indication
     Dosage: 1 MILLIGRAM-STRENGTH?AT LUNCH
     Route: 065
     Dates: start: 202110
  11. ESOMEPRAZOLE [Concomitant]
     Active Substance: ESOMEPRAZOLE
     Indication: Product used for unknown indication
     Dosage: 1 TABLET AT FASTING
     Dates: start: 202110
  12. TRAZODONE [Concomitant]
     Active Substance: TRAZODONE HYDROCHLORIDE
     Indication: Product used for unknown indication
     Dosage: 0.5 TABLET?AT BEDTIME
     Route: 048
     Dates: start: 202110, end: 2022
  13. CYANOCOBALAMIN\FOLIC ACID\PYRIDOXINE HYDROCHLORIDE [Concomitant]
     Active Substance: CYANOCOBALAMIN\FOLIC ACID\PYRIDOXINE HYDROCHLORIDE
     Indication: Product used for unknown indication
     Dosage: 1 TABLET AT LUNCH STRENGTH 5 MG
     Route: 065
     Dates: start: 202110
  14. DIAZEPAM [Concomitant]
     Active Substance: DIAZEPAM
     Indication: Product used for unknown indication
     Dosage: 10 MILLIGRAM?AT BEDTIME?STARTED BEFORE DUODOPA, STRENGTH 10 MG
     Route: 065
     Dates: end: 2022
  15. SINEMET CR [Concomitant]
     Active Substance: CARBIDOPA\LEVODOPA
     Indication: Product used for unknown indication
     Dosage: 2 TABLET
  16. SINEMET CR [Concomitant]
     Active Substance: CARBIDOPA\LEVODOPA
     Indication: Product used for unknown indication
     Dosage: 2 TABLET?AT BEDTIME ?STARTED BEFORE DUODOPA
     Route: 048
  17. RISPERDAL [Concomitant]
     Active Substance: RISPERIDONE
     Indication: Psychotic disorder
     Dates: start: 20220228, end: 2022
  18. RISPERDAL [Concomitant]
     Active Substance: RISPERIDONE
     Indication: Psychotic disorder
     Dosage: IN SOS
     Route: 065
     Dates: start: 20220228, end: 2022
  19. DOMPERIDONE [Concomitant]
     Active Substance: DOMPERIDONE
     Indication: Product used for unknown indication
     Dosage: TIME INTERVAL: 0.33333333 DAYS: 3 TABLET
     Dates: start: 202110, end: 2022
  20. QUETIAPINE [Concomitant]
     Active Substance: QUETIAPINE
     Indication: Psychotic disorder
     Route: 065
     Dates: start: 20220302

REACTIONS (11)
  - Wound [Recovered/Resolved]
  - Fall [Not Recovered/Not Resolved]
  - Hypertension [Recovered/Resolved]
  - Pain [Not Recovered/Not Resolved]
  - Fall [Recovered/Resolved]
  - Gait disturbance [Not Recovered/Not Resolved]
  - Movement disorder [Not Recovered/Not Resolved]
  - Freezing phenomenon [Not Recovered/Not Resolved]
  - Parkinsonian gait [Not Recovered/Not Resolved]
  - Reduced facial expression [Not Recovered/Not Resolved]
  - Somnolence [Recovered/Resolved]

NARRATIVE: CASE EVENT DATE: 20220901
